FAERS Safety Report 4732994-9 (Version None)
Quarter: 2005Q3

REPORT INFORMATION
  Report Type: 
  Country: None (occurrence: None)
  Receive Date: 20050801
  Receipt Date: 20050719
  Transmission Date: 20060218
  Serious: Yes (Other)
  Sender: FDA-Public Use
  Company Number: US-2005-014435

PATIENT
  Age: 39 Year
  Sex: Female

DRUGS (2)
  1. MIRENA [Suspect]
     Indication: CONTRACEPTION
     Dosage: 20 UG/DAY, CONT, INTRA-UTERINE
     Route: 015
     Dates: start: 20030501
  2. GLUCOPHAGE [Concomitant]

REACTIONS (3)
  - FALLOPIAN TUBE CANCER [None]
  - UTERINE LEIOMYOMA [None]
  - VAGINAL DISCHARGE [None]
